FAERS Safety Report 10896344 (Version 1)
Quarter: 2015Q1

REPORT INFORMATION
  Report Type: Spontaneous
  Country: FR (occurrence: FR)
  Receive Date: 20150309
  Receipt Date: 20150309
  Transmission Date: 20150721
  Serious: Yes (Hospitalization)
  Sender: FDA-Public Use
  Company Number: FR-ACCORD-029134

PATIENT
  Age: 71 Year
  Sex: Female

DRUGS (8)
  1. DOCETAXEL ACCORD [Suspect]
     Active Substance: DOCETAXEL
     Indication: PRODUCT USED FOR UNKNOWN INDICATION
     Dosage: 3RD COURSE: 184 MG ONE SINGLE DOSE ON 03-NOV-2014.
     Dates: start: 20141013
  2. INEXIUM [Concomitant]
     Active Substance: ESOMEPRAZOLE
  3. CORDARONE [Concomitant]
     Active Substance: AMIODARONE HYDROCHLORIDE
  4. CORGARD [Concomitant]
     Active Substance: NADOLOL
  5. ALDACTONE [Concomitant]
     Active Substance: SPIRONOLACTONE
  6. KARDEGIC [Concomitant]
     Active Substance: ASPIRIN LYSINE
  7. LIPANTHYL [Concomitant]
     Active Substance: FENOFIBRATE
  8. ELIQUIS [Concomitant]
     Active Substance: APIXABAN

REACTIONS (8)
  - Loss of consciousness [Recovered/Resolved]
  - Chills [Recovered/Resolved]
  - Mucosal inflammation [Recovered/Resolved]
  - Pyrexia [Recovered/Resolved]
  - Palmar-plantar erythrodysaesthesia syndrome [Recovered/Resolved]
  - Paraesthesia [Recovered/Resolved]
  - Malaise [Recovered/Resolved]
  - Agranulocytosis [Recovered/Resolved]

NARRATIVE: CASE EVENT DATE: 201410
